FAERS Safety Report 10240256 (Version 1)
Quarter: 2014Q2

REPORT INFORMATION
  Report Type: Spontaneous
  Country: JP (occurrence: JP)
  Receive Date: 20140617
  Receipt Date: 20140617
  Transmission Date: 20141212
  Serious: Yes (Hospitalization)
  Sender: FDA-Public Use
  Company Number: PHHY2014JP073824

PATIENT
  Age: 80 Year
  Sex: Female

DRUGS (2)
  1. EXELON PATCH [Suspect]
     Indication: DEMENTIA
     Dosage: 4.5 MG, DAILY
     Route: 062
  2. EXELON PATCH [Suspect]
     Dosage: 9 MG, DAILY
     Route: 062

REACTIONS (1)
  - Femur fracture [Unknown]
